FAERS Safety Report 24705269 (Version 1)
Quarter: 2024Q4

REPORT INFORMATION
  Report Type: Spontaneous
  Country: NO (occurrence: NO)
  Receive Date: 20241206
  Receipt Date: 20241206
  Transmission Date: 20250115
  Serious: Yes (Hospitalization, Other)
  Sender: BRISTOL-MYERS SQUIBB COMPANY
  Company Number: None

PATIENT
  Age: 39 Year
  Sex: Male

DRUGS (5)
  1. INREBIC [Suspect]
     Active Substance: FEDRATINIB HYDROCHLORIDE
     Indication: Myelofibrosis
     Dosage: 100 MG X 4 PER DAY
     Route: 048
     Dates: start: 20240917, end: 20241115
  2. ASPIRIN\MAGNESIUM OXIDE [Concomitant]
     Active Substance: ASPIRIN\MAGNESIUM OXIDE
     Indication: Polycythaemia vera
     Dosage: PAUSED DURING THE HOSPITALIZATION WITH WERNICKE^S ENCEPHALOPATHY IN NOVEMBER 2024
     Dates: end: 2024
  3. VIMOVO [Concomitant]
     Active Substance: ESOMEPRAZOLE MAGNESIUM\NAPROXEN
     Indication: Pain
     Dosage: 1 TABLET UP TO TWO TIMES PER DAY
  4. AMITRIPTYLINE HYDROCHLORIDE [Concomitant]
     Active Substance: AMITRIPTYLINE HYDROCHLORIDE
     Indication: Pain
     Dosage: 50 MG IN THE EVENING
  5. ACETAMINOPHEN [Concomitant]
     Active Substance: ACETAMINOPHEN
     Indication: Pain
     Dosage: 500 MG UP TO FOUR TIMES PER DAY

REACTIONS (2)
  - Wernicke^s encephalopathy [Recovering/Resolving]
  - Drug monitoring procedure not performed [Recovering/Resolving]

NARRATIVE: CASE EVENT DATE: 20240101
